FAERS Safety Report 5036640-9 (Version None)
Quarter: 2006Q2

REPORT INFORMATION
  Report Type: 
  Country: None (occurrence: None)
  Receive Date: 20060601
  Receipt Date: 20060406
  Transmission Date: 20061013
  Serious: No
  Sender: FDA-Public Use
  Company Number: US200604001495

PATIENT
  Age: 35 Year
  Sex: Female

DRUGS (6)
  1. CYMBALTA [Suspect]
     Dosage: SEE IMAGE
     Dates: start: 20050701
  2. DEPAKOTE [Concomitant]
  3. NEURONTIN [Concomitant]
  4. GABAPENTIN [Concomitant]
  5. CLONAPIN [Concomitant]
  6. BUSPAR [Concomitant]

REACTIONS (2)
  - AGITATION [None]
  - AKATHISIA [None]
